FAERS Safety Report 4338997-0 (Version None)
Quarter: 2004Q2

REPORT INFORMATION
  Report Type: 
  Country: None (occurrence: None)
  Receive Date: 20040409
  Receipt Date: 20040331
  Transmission Date: 20050107
  Serious: Yes (Hospitalization)
  Sender: FDA-Public Use
  Company Number: CIP03003326

PATIENT
  Age: 55 Year
  Sex: Female

DRUGS (1)
  1. BENET (RISEDRONATE SODIUM) TABLET, 2.5MG [Suspect]
     Indication: OSTEOPOROSIS
     Dosage: 2.5 MG, DAILY, ORAL
     Route: 048

REACTIONS (3)
  - DUODENAL STENOSIS [None]
  - OESOPHAGEAL CARCINOMA [None]
  - RECURRENT CANCER [None]
